FAERS Safety Report 10445374 (Version 1)
Quarter: 2014Q3

REPORT INFORMATION
  Report Type: Spontaneous
  Country: US (occurrence: US)
  Receive Date: 20140908
  Receipt Date: 20140908
  Transmission Date: 20150326
  Serious: Yes (Hospitalization)
  Sender: FDA-Public Use
  Company Number: US-BRISTOL-MYERS SQUIBB COMPANY-20713426

PATIENT
  Sex: Female

DRUGS (2)
  1. ABILIFY [Suspect]
     Active Substance: ARIPIPRAZOLE
     Dosage: TOOK 10 TABLETS
     Dates: end: 20140503
  2. COGENTIN [Concomitant]
     Active Substance: BENZTROPINE MESYLATE

REACTIONS (1)
  - Overdose [Unknown]
